FAERS Safety Report 9231854 (Version 1)
Quarter: 2013Q2

REPORT INFORMATION
  Report Type: Spontaneous
  Country: US (occurrence: US)
  Receive Date: 20130415
  Receipt Date: 20130415
  Transmission Date: 20140414
  Serious: Yes (Hospitalization)
  Sender: FDA-Public Use
  Company Number: US-COVIDIEN/TYCO HEALTHCARE/MALLINCKRODT-T201204640

PATIENT
  Age: 57 Year
  Sex: Male

DRUGS (9)
  1. FENTANYL CITRATE [Suspect]
  2. TRAMADOL [Suspect]
  3. COLCHICINE [Suspect]
  4. ACETYLSALICYLIC ACID [Suspect]
  5. LONG-ACTING NITRATES [Suspect]
  6. THIAZIDE [Suspect]
  7. ANGIOTENSIN CONVERTING ENZYME INHIBITORS [Suspect]
  8. UNSPECIFIED INGREDIENTS [Suspect]
  9. UNSPECIFIED INGREDIENTS [Suspect]

REACTIONS (1)
  - Suicide attempt [Unknown]
